FAERS Safety Report 16719762 (Version 9)
Quarter: 2021Q4

REPORT INFORMATION
  Report Type: Spontaneous
  Country: US (occurrence: US)
  Receive Date: 20190820
  Receipt Date: 20211231
  Transmission Date: 20220303
  Serious: Yes (Other)
  Sender: FDA-Public Use
  Company Number: US-PFIZER INC-2018153002

PATIENT
  Age: 79 Year
  Sex: Male

DRUGS (4)
  1. LYRICA [Suspect]
     Active Substance: PREGABALIN
     Indication: Back pain
     Dosage: 50 MG, 1X/DAY(AT BEDTIME)
     Route: 048
  2. LYRICA [Suspect]
     Active Substance: PREGABALIN
     Indication: Perthes disease
     Dosage: 150 MG, DAILY
  3. LYRICA [Suspect]
     Active Substance: PREGABALIN
     Indication: Spinal pain
     Dosage: 50 MG, 1X/DAY
     Route: 048
  4. LYRICA [Suspect]
     Active Substance: PREGABALIN
     Indication: Neuralgia

REACTIONS (16)
  - Cardiac failure congestive [Unknown]
  - Therapeutic product effect variable [Unknown]
  - Abdominal distension [Unknown]
  - Oesophageal disorder [Unknown]
  - Eructation [Unknown]
  - Joint swelling [Unknown]
  - Peripheral swelling [Unknown]
  - Wheezing [Unknown]
  - Chest pain [Unknown]
  - Gait disturbance [Unknown]
  - Limb discomfort [Unknown]
  - Arthralgia [Unknown]
  - Neck pain [Unknown]
  - Memory impairment [Unknown]
  - Groin pain [Unknown]
  - Hypoaesthesia [Unknown]
